FAERS Safety Report 23128620 (Version 1)
Quarter: 2023Q4

REPORT INFORMATION
  Report Type: Spontaneous
  Country: US (occurrence: US)
  Receive Date: 20231031
  Receipt Date: 20231031
  Transmission Date: 20240110
  Serious: No
  Sender: FDA-Public Use
  Company Number: US-PADAGIS-2023PAD01533

PATIENT

DRUGS (1)
  1. ESTRADIOL VAGINAL [Suspect]
     Active Substance: ESTRADIOL
     Indication: Menopause
     Dosage: 0.5 G TWICE A WEEK
     Route: 065

REACTIONS (3)
  - Underdose [Unknown]
  - Prescribed underdose [Unknown]
  - Product availability issue [Unknown]
